FAERS Safety Report 8099462-0 (Version None)
Quarter: 2012Q1

REPORT INFORMATION
  Report Type: 
  Country: None (occurrence: None)
  Receive Date: 20120129
  Receipt Date: 20111005
  Transmission Date: 20120608
  Serious: No
  Sender: FDA-Public Use
  Company Number: US-ABBOTT-11P-163-0861789-00

PATIENT
  Sex: Male

DRUGS (1)
  1. HUMIRA [Suspect]
     Indication: CROHN'S DISEASE
     Dosage: 1 INJECTION, EVERY 2 WEEKS
     Route: 058
     Dates: start: 20110401

REACTIONS (2)
  - NAUSEA [None]
  - ABDOMINAL DISTENSION [None]
